FAERS Safety Report 22172225 (Version 1)
Quarter: 2023Q2

REPORT INFORMATION
  Report Type: Spontaneous
  Country: US (occurrence: None)
  Receive Date: 20230403
  Receipt Date: 20230403
  Transmission Date: 20230722
  Serious: No
  Sender: FDA-Public Use
  Company Number: None

PATIENT
  Age: 27 Year
  Sex: Female

DRUGS (1)
  1. MAVYRET [Suspect]
     Active Substance: GLECAPREVIR\PIBRENTASVIR
     Indication: Chronic hepatitis C
     Dosage: OTHER QUANTITY : 100-40 MG;?FREQUENCY : DAILY;?
     Route: 048
     Dates: start: 202303

REACTIONS (3)
  - Blood urine present [None]
  - Nephrolithiasis [None]
  - Abdominal discomfort [None]

NARRATIVE: CASE EVENT DATE: 20230330
